FAERS Safety Report 8183441-9 (Version None)
Quarter: 2012Q1

REPORT INFORMATION
  Report Type: 
  Country: None (occurrence: None)
  Receive Date: 20120130
  Receipt Date: 20110926
  Transmission Date: 20120608
  Serious: Yes (Hospitalization)
  Sender: FDA-Public Use
  Company Number: 042201

PATIENT
  Age: 7 Year
  Sex: Female

DRUGS (2)
  1. KEPPRA [Suspect]
     Dates: start: 20110801, end: 20110901
  2. KEPPRA [Suspect]
     Dosage: (300 MG BID INTRAVENOUS (NOT OTHERWISE SPECIFIED))
     Route: 042
     Dates: start: 20110901, end: 20110901

REACTIONS (2)
  - CONVULSION [None]
  - HALLUCINATION, VISUAL [None]
